FAERS Safety Report 23710723 (Version 1)
Quarter: 2024Q2

REPORT INFORMATION
  Report Type: Report from Study
  Country: US (occurrence: US)
  Receive Date: 20240405
  Receipt Date: 20240405
  Transmission Date: 20240716
  Serious: Yes (Other)
  Sender: FDA-Public Use
  Company Number: US-BEH-2024170282

PATIENT
  Sex: Female
  Weight: 63 kg

DRUGS (1)
  1. HIZENTRA [Suspect]
     Active Substance: HUMAN IMMUNOGLOBULIN G
     Indication: Immunodeficiency common variable
     Dosage: 32 G, QMT
     Route: 058
     Dates: start: 20240325

REACTIONS (2)
  - Brain injury [Unknown]
  - Bradyphrenia [Unknown]
